FAERS Safety Report 23092187 (Version 1)
Quarter: 2023Q4

REPORT INFORMATION
  Report Type: Spontaneous
  Country: GB (occurrence: GB)
  Receive Date: 20231021
  Receipt Date: 20231021
  Transmission Date: 20240109
  Serious: Yes (Life-Threatening, Other)
  Sender: FDA-Public Use
  Company Number: GB-002147023-NVSC2023GB223863

PATIENT
  Sex: Female

DRUGS (1)
  1. XOLAIR [Suspect]
     Active Substance: OMALIZUMAB
     Indication: Urticaria
     Dosage: 300 MG, EVERY 4 WEEKS
     Route: 058

REACTIONS (9)
  - Urticaria [Unknown]
  - Angioedema [Unknown]
  - Diabetes mellitus [Unknown]
  - Frustration tolerance decreased [Unknown]
  - Insomnia [Unknown]
  - Gait disturbance [Unknown]
  - Peripheral swelling [Unknown]
  - Product dose omission issue [Unknown]
  - Product availability issue [Unknown]
